FAERS Safety Report 5913762-9 (Version None)
Quarter: 2008Q4

REPORT INFORMATION
  Report Type: 
  Country: None (occurrence: None)
  Receive Date: 20081009
  Receipt Date: 20081003
  Transmission Date: 20090506
  Serious: Yes (Death, Disabling, Other)
  Sender: FDA-Public Use
  Company Number: JP-NOVOPROD-278805

PATIENT
  Age: 70 Year
  Sex: Male
  Weight: 50 kg

DRUGS (40)
  1. NOVOSEVEN [Suspect]
     Indication: ACQUIRED HAEMOPHILIA
     Dosage: 4.8 MG, SINGLE
     Route: 042
     Dates: start: 20080731, end: 20080731
  2. NOVOSEVEN [Suspect]
     Dosage: 4.8 MG, BID
     Route: 042
     Dates: start: 20080806, end: 20080806
  3. NOVOSEVEN [Suspect]
     Dosage: 4.8 MG, BID
     Route: 042
     Dates: start: 20080816, end: 20080816
  4. PREDNISOLONE [Concomitant]
     Indication: ACQUIRED HAEMOPHILIA
     Dates: start: 20080724
  5. PENFILL 30R CHU [Concomitant]
     Indication: DIABETES MELLITUS
     Route: 058
     Dates: start: 20080521, end: 20080728
  6. HUMULIN R [Concomitant]
     Indication: DIABETES MELLITUS
     Route: 058
     Dates: start: 20080723, end: 20080823
  7. HUMALOG [Concomitant]
     Indication: DIABETES MELLITUS
     Dates: start: 20080820, end: 20080822
  8. LANTUS [Concomitant]
     Indication: DIABETES MELLITUS
     Route: 058
     Dates: start: 20080820, end: 20080822
  9. ASPIRIN [Concomitant]
     Indication: CEREBRAL INFARCTION
     Route: 048
     Dates: end: 20080718
  10. AMLODIPINE [Concomitant]
     Indication: HYPERTENSION
     Route: 048
     Dates: end: 20080526
  11. NORVASC [Concomitant]
     Indication: HYPERTENSION
     Route: 048
     Dates: start: 20080527, end: 20080722
  12. DIOVAN                             /01319601/ [Concomitant]
     Indication: HYPERTENSION
     Route: 048
     Dates: end: 20080821
  13. RABEPRAZOLE SODIUM [Concomitant]
     Indication: GASTRIC ULCER
     Route: 048
     Dates: end: 20080630
  14. MAGNESIUM OXIDE [Concomitant]
     Indication: CONSTIPATION
     Route: 048
     Dates: end: 20080722
  15. PREDNISOLONE [Concomitant]
     Indication: AUTOIMMUNE THYROIDITIS
     Route: 048
     Dates: start: 20080530, end: 20080723
  16. PREDNISOLONE [Concomitant]
     Indication: ACQUIRED HAEMOPHILIA
     Dates: start: 20080731, end: 20080823
  17. BONALEN                            /01220302/ [Concomitant]
     Indication: OSTEOPOROSIS
     Route: 048
     Dates: start: 20080530, end: 20080626
  18. COTRIM [Concomitant]
     Indication: PNEUMOCYSTIS JIROVECI PNEUMONIA
     Route: 048
     Dates: start: 20080530, end: 20080704
  19. ROCALTROL [Concomitant]
     Indication: OSTEOPOROSIS
     Route: 048
     Dates: start: 20080627, end: 20080722
  20. SELBEX [Concomitant]
     Indication: GASTRITIS
     Route: 048
     Dates: start: 20080701, end: 20080722
  21. URSO                               /00465701/ [Concomitant]
     Indication: CHOLESTASIS
     Route: 048
     Dates: start: 20080701, end: 20080722
  22. DIAZEPAM [Concomitant]
     Indication: DEPRESSION
     Route: 048
     Dates: start: 20080704, end: 20080706
  23. GRAMALIL [Concomitant]
     Indication: DEPRESSION
     Route: 048
     Dates: start: 20080707, end: 20080722
  24. DEPROMEL                           /00615201/ [Concomitant]
     Indication: DEPRESSION
     Route: 048
     Dates: start: 20080709, end: 20080728
  25. ADONA                              /00056903/ [Concomitant]
     Indication: ACQUIRED HAEMOPHILIA
     Route: 048
     Dates: start: 20080719, end: 20080722
  26. ADONA                              /00056903/ [Concomitant]
     Dates: start: 20080723, end: 20080820
  27. TRANSAMIN [Concomitant]
     Indication: ACQUIRED HAEMOPHILIA
     Route: 048
     Dates: start: 20080719, end: 20080722
  28. TRANSAMIN [Concomitant]
     Dates: start: 20080723, end: 20080820
  29. GASTER                             /00706001/ [Concomitant]
     Indication: GASTRIC ULCER
     Route: 048
     Dates: start: 20080719, end: 20080722
  30. ALLOID G [Concomitant]
     Indication: GASTRIC ULCER
  31. SEPAMIT [Concomitant]
     Indication: HYPERTENSION
     Dates: start: 20080821, end: 20080821
  32. PERDIPINE [Concomitant]
     Indication: CEREBRAL HAEMORRHAGE
     Dates: start: 20080731, end: 20080822
  33. SERENASE                           /00027401/ [Concomitant]
     Indication: DEPRESSION
     Dates: start: 20080725, end: 20080730
  34. VEEN D [Concomitant]
     Indication: HYPOPHAGIA
     Dates: start: 20080724, end: 20080727
  35. VITAMEDIN                          /00176001/ [Concomitant]
     Indication: HYPOPHAGIA
     Dates: start: 20080724, end: 20080727
  36. SOLITA-T3 [Concomitant]
     Indication: HYPOPHAGIA
     Dates: start: 20080731, end: 20080802
  37. ALINAMIN F                         /00257801/ [Concomitant]
     Indication: HYPOPHAGIA
     Dates: start: 20080822, end: 20080822
  38. ACETATED RINGER [Concomitant]
     Indication: HYPOPHAGIA
     Dates: start: 20080822, end: 20080822
  39. KAYTWO N [Concomitant]
     Indication: ACQUIRED HAEMOPHILIA
     Dates: start: 20080811, end: 20080822
  40. ENDOXAN                            /00021101/ [Concomitant]
     Indication: ACQUIRED HAEMOPHILIA
     Dosage: UNK, UNK
     Dates: start: 20080806, end: 20080806

REACTIONS (5)
  - CATHETER RELATED COMPLICATION [None]
  - GASTROINTESTINAL NECROSIS [None]
  - HYDROCEPHALUS [None]
  - INTESTINAL ISCHAEMIA [None]
  - PNEUMONIA ASPIRATION [None]
